FAERS Safety Report 7297924-7 (Version None)
Quarter: 2011Q1

REPORT INFORMATION
  Report Type: 
  Country: None (occurrence: None)
  Receive Date: 20110217
  Receipt Date: 20110214
  Transmission Date: 20110831
  Serious: No
  Sender: FDA-Public Use
  Company Number: US-JNJFOC-20110106169

PATIENT
  Sex: Female
  Weight: 77.11 kg

DRUGS (9)
  1. FENTANYL-100 [Suspect]
     Route: 062
  2. FENTANYL-100 [Suspect]
     Route: 062
  3. FENTANYL-100 [Suspect]
     Indication: PAIN IN EXTREMITY
     Route: 062
  4. FENTANYL-100 [Suspect]
     Indication: BACK PAIN
     Route: 062
  5. FENTANYL-100 [Suspect]
     Indication: FIBROMYALGIA
     Route: 062
  6. LORCET-HD [Concomitant]
     Indication: PAIN
     Route: 048
  7. FENTANYL-100 [Suspect]
     Indication: FIBROMYALGIA
     Route: 062
  8. FENTANYL-100 [Suspect]
     Route: 062
  9. MORPHINE [Suspect]
     Indication: PAIN
     Route: 048

REACTIONS (4)
  - PRODUCT QUALITY ISSUE [None]
  - WRONG TECHNIQUE IN DRUG USAGE PROCESS [None]
  - PRODUCT ADHESION ISSUE [None]
  - DRUG INEFFECTIVE [None]
